FAERS Safety Report 23896786 (Version 3)
Quarter: 2024Q3

REPORT INFORMATION
  Report Type: Spontaneous
  Country: US (occurrence: US)
  Receive Date: 20240524
  Receipt Date: 20240920
  Transmission Date: 20241017
  Serious: Yes (Life-Threatening, Hospitalization, Other)
  Sender: TORRENT
  Company Number: US-TORRENT-00013573

PATIENT
  Age: 66 Year
  Sex: Male
  Weight: 86 kg

DRUGS (1)
  1. LAMOTRIGINE [Suspect]
     Active Substance: LAMOTRIGINE
     Indication: Bipolar disorder
     Dosage: 21G OF LAMOTRIGINE IN IMMEDIATE RELEASE TABLETS (TOTAL)
     Route: 048
     Dates: start: 20230501, end: 20230501

REACTIONS (9)
  - Intentional overdose [Recovered/Resolved]
  - Cardiotoxicity [Recovered/Resolved]
  - Unresponsive to stimuli [Recovered/Resolved]
  - Tachyarrhythmia [Recovered/Resolved]
  - Suicide attempt [Recovered/Resolved]
  - Bundle branch block left [Recovered/Resolved]
  - Deep vein thrombosis [Unknown]
  - Electrocardiogram QRS complex prolonged [Recovered/Resolved]
  - Haemodynamic instability [Recovering/Resolving]

NARRATIVE: CASE EVENT DATE: 20230501
